FAERS Safety Report 8307889-4 (Version None)
Quarter: 2012Q2

REPORT INFORMATION
  Report Type: 
  Country: None (occurrence: None)
  Receive Date: 20120424
  Receipt Date: 20120418
  Transmission Date: 20120825
  Serious: Yes (Hospitalization)
  Sender: FDA-Public Use
  Company Number: ES-GLAXOSMITHKLINE-Z0015155A

PATIENT
  Sex: Female
  Weight: 43.5 kg

DRUGS (6)
  1. OFATUMUMAB [Suspect]
     Indication: CHRONIC LYMPHOCYTIC LEUKAEMIA
     Route: 042
     Dates: start: 20111121
  2. NEUPOGEN [Concomitant]
     Indication: FEBRILE NEUTROPENIA
     Dosage: 300MCG SINGLE DOSE
     Route: 058
     Dates: start: 20120416, end: 20120416
  3. SEPTRIM [Concomitant]
     Indication: INFECTION PROPHYLAXIS
     Dosage: 875MG FOUR TIMES PER WEEK
     Route: 048
     Dates: start: 20120416
  4. FLUDARABINE PHOSPHATE [Suspect]
     Indication: CHRONIC LYMPHOCYTIC LEUKAEMIA
     Route: 042
     Dates: start: 20111121
  5. AUGMENTIN '125' [Concomitant]
     Indication: INFECTION PROPHYLAXIS
     Dosage: 1G THREE TIMES PER DAY
     Route: 042
     Dates: start: 20120416
  6. CYCLOPHOSPHAMIDE [Suspect]
     Indication: CHRONIC LYMPHOCYTIC LEUKAEMIA
     Route: 042
     Dates: start: 20111121

REACTIONS (1)
  - FEBRILE NEUTROPENIA [None]
